FAERS Safety Report 10366188 (Version 1)
Quarter: 2014Q1

REPORT INFORMATION
  Report Type: Spontaneous
  Country: US (occurrence: None)
  Receive Date: 20140306
  Receipt Date: 20140306
  Transmission Date: 20141002
  Serious: Yes (Other)
  Sender: FDA-Public Use
  Company Number: 163-21880-13022537

PATIENT
  Age: 79 Year
  Sex: Female
  Weight: 72.58 kg

DRUGS (15)
  1. REVLIMIB (LENALIDOMIDE) (CAPSULES) [Suspect]
     Indication: MYELODYSPLASTIC SYNDROME
     Route: 048
     Dates: start: 201107
  2. AMITRIPTYLINE HCL (AMITRIPTYLINE HYDROCHLORIDE)) [Concomitant]
  3. ASPIRIN (ACETYLSALICYLIC ACID) [Concomitant]
  4. ATENOLOL (ATENOLOL) [Concomitant]
  5. BIOTIN (BIOTIN) [Concomitant]
  6. CALCIUM CARBONATE + VITAMIN D3 (LEKOVIT CA) [Concomitant]
  7. CITRUCEL (METHYCELLULOSE) [Concomitant]
  8. HCTZ (HYDROCHLOROTHIAZIDE) [Concomitant]
  9. LECITHIN (LECITHIN) [Concomitant]
  10. LIPITOR (ATORVASTATIN) [Concomitant]
  11. MULTIVITAMINIS (MULTIVITAMINS) [Concomitant]
  12. OMEGA 3 (FISH OIL) [Concomitant]
  13. TESSALON PERLE (BENZONATATE) [Concomitant]
  14. VITAMIN B12 (CYANOCOBALAMIN) [Concomitant]
  15. VITAMIN D (ERGOCALCIFEROL) [Concomitant]

REACTIONS (2)
  - Anaemia [None]
  - Leukopenia [None]
